FAERS Safety Report 20147786 (Version 1)
Quarter: 2021Q4

REPORT INFORMATION
  Report Type: Spontaneous
  Country: US (occurrence: US)
  Receive Date: 20211203
  Receipt Date: 20211203
  Transmission Date: 20220303
  Serious: Yes (Hospitalization, Other)
  Sender: FDA-Public Use
  Company Number: US-UNITED THERAPEUTICS-UNT-2021-024066

PATIENT
  Age: 79 Year
  Sex: Male
  Weight: 93.424 kg

DRUGS (3)
  1. TYVASO [Suspect]
     Active Substance: TREPROSTINIL
     Indication: Pulmonary arterial hypertension
     Dosage: UNK
     Dates: start: 20211108
  2. TYVASO [Suspect]
     Active Substance: TREPROSTINIL
     Dosage: 18-72 ?G, QID
     Dates: start: 202111
  3. ESBRIET [Concomitant]
     Active Substance: PIRFENIDONE
     Indication: Product used for unknown indication
     Dosage: UNK
     Route: 065

REACTIONS (3)
  - Fall [Recovered/Resolved with Sequelae]
  - Musculoskeletal chest pain [Unknown]
  - Oxygen saturation decreased [Unknown]

NARRATIVE: CASE EVENT DATE: 20211120
